FAERS Safety Report 5207046-4 (Version None)
Quarter: 2007Q1

REPORT INFORMATION
  Report Type: 
  Country: None (occurrence: None)
  Receive Date: 20070110
  Receipt Date: 20070102
  Transmission Date: 20070707
  Serious: Yes (Other)
  Sender: FDA-Public Use
  Company Number: 233455

PATIENT
  Age: 48 Year
  Sex: Female
  Weight: 63.5 kg

DRUGS (5)
  1. RITUXAN [Suspect]
     Indication: RHEUMATOID ARTHRITIS
     Dates: start: 20061026, end: 20061114
  2. METHOTREXATE [Concomitant]
  3. PREDNISONE TAB [Concomitant]
  4. TRAZODONE HCL [Concomitant]
  5. WELLBUTRIN [Concomitant]

REACTIONS (1)
  - OEDEMA PERIPHERAL [None]
